FAERS Safety Report 5768601-6 (Version None)
Quarter: 2008Q2

REPORT INFORMATION
  Report Type: 
  Country: None (occurrence: None)
  Receive Date: 20080612
  Receipt Date: 20080307
  Transmission Date: 20081010
  Serious: No
  Sender: FDA-Public Use
  Company Number: US-ABBOTT-08P-163-0441640-00

PATIENT
  Sex: Female
  Weight: 62.652 kg

DRUGS (1)
  1. HUMIRA [Suspect]
     Indication: RHEUMATOID ARTHRITIS
     Route: 058
     Dates: start: 20080218

REACTIONS (7)
  - ASTHENOPIA [None]
  - COUGH [None]
  - DIZZINESS [None]
  - FATIGUE [None]
  - INFECTION [None]
  - NASOPHARYNGITIS [None]
  - NAUSEA [None]
